FAERS Safety Report 15693817 (Version 2)
Quarter: 2018Q4

REPORT INFORMATION
  Report Type: Report from Study
  Country: US (occurrence: US)
  Receive Date: 20181206
  Receipt Date: 20181217
  Transmission Date: 20190205
  Serious: Yes (Hospitalization)
  Sender: FDA-Public Use
  Company Number: US-JNJFOC-20181200113

PATIENT
  Age: 17 Year
  Sex: Female
  Weight: 62.7 kg

DRUGS (16)
  1. BENTYL [Concomitant]
     Active Substance: DICYCLOMINE HYDROCHLORIDE
     Route: 065
  2. COMPAZINE [Concomitant]
     Active Substance: PROCHLORPERAZINE MALEATE
     Route: 065
  3. CYPROHEPTADINE. [Concomitant]
     Active Substance: CYPROHEPTADINE
     Route: 065
  4. LANSOPRAZOLE. [Concomitant]
     Active Substance: LANSOPRAZOLE
     Route: 065
  5. NARATRIPTAN [Concomitant]
     Active Substance: NARATRIPTAN HYDROCHLORIDE
     Route: 065
  6. REMICADE [Suspect]
     Active Substance: INFLIXIMAB
     Indication: INFLAMMATORY BOWEL DISEASE
     Route: 042
     Dates: start: 20171009, end: 20180517
  7. VITAMIN D3 [Concomitant]
     Active Substance: CHOLECALCIFEROL
     Route: 065
  8. FLUTICASONE. [Concomitant]
     Active Substance: FLUTICASONE
     Route: 065
  9. FISH OIL [Concomitant]
     Active Substance: FISH OIL
     Route: 065
  10. ZOFRAN [Concomitant]
     Active Substance: ONDANSETRON HYDROCHLORIDE
     Route: 065
  11. ENTYVIO [Concomitant]
     Active Substance: VEDOLIZUMAB
     Route: 065
     Dates: start: 20180531
  12. ASCORBIC ACID. [Concomitant]
     Active Substance: ASCORBIC ACID
     Route: 065
  13. FERROUS SULFATE. [Concomitant]
     Active Substance: FERROUS SULFATE
     Route: 065
  14. NEURONTIN [Concomitant]
     Active Substance: GABAPENTIN
     Route: 065
  15. VENLAFAXINE [Concomitant]
     Active Substance: VENLAFAXINE HYDROCHLORIDE
     Route: 065
  16. VITAMIN B12 [Concomitant]
     Active Substance: CYANOCOBALAMIN
     Route: 065

REACTIONS (1)
  - Hyperaesthesia [Recovered/Resolved]

NARRATIVE: CASE EVENT DATE: 20181123
